FAERS Safety Report 4716820-X (Version None)
Quarter: 2005Q3

REPORT INFORMATION
  Report Type: 
  Country: None (occurrence: None)
  Receive Date: 20050714
  Receipt Date: 20050701
  Transmission Date: 20060218
  Serious: Yes (Disabling)
  Sender: FDA-Public Use
  Company Number: 2004238304DE

PATIENT
  Age: 52 Year
  Sex: Female
  Weight: 55 kg

DRUGS (1)
  1. CLINDAMYCIN HYDROCHLORIDE [Suspect]
     Indication: TOOTH DISORDER
     Dosage: 1200 MG (300 MG, QID), ORAL
     Route: 048
     Dates: start: 20040524, end: 20040501

REACTIONS (5)
  - DRUG INTOLERANCE [None]
  - ENTERITIS [None]
  - POLYARTHRITIS [None]
  - POLYMYALGIA RHEUMATICA [None]
  - WHITE BLOOD CELL COUNT INCREASED [None]
